FAERS Safety Report 20718914 (Version 2)
Quarter: 2022Q2

REPORT INFORMATION
  Report Type: Spontaneous
  Country: TR (occurrence: TR)
  Receive Date: 20220418
  Receipt Date: 20220421
  Transmission Date: 20220721
  Serious: Yes (Death, Life-Threatening, Hospitalization, Other)
  Sender: FDA-Public Use
  Company Number: None

PATIENT
  Age: 64 Year
  Sex: Male

DRUGS (3)
  1. DEXAMETHASONE [Suspect]
     Active Substance: DEXAMETHASONE
     Indication: COVID-19 pneumonia
     Dosage: 8 MILLIGRAM, PER DAY
     Route: 065
  2. FAVIPIRAVIR [Suspect]
     Active Substance: FAVIPIRAVIR
     Indication: COVID-19 pneumonia
     Dosage: UNK
     Route: 065
  3. TOCILIZUMAB [Suspect]
     Active Substance: TOCILIZUMAB
     Indication: COVID-19 pneumonia
     Dosage: 400 MILLIGRAM, 2 DOSES
     Route: 065

REACTIONS (13)
  - Hypotension [Fatal]
  - Multiple-drug resistance [Fatal]
  - Bacteraemia [Fatal]
  - Device related bacteraemia [Fatal]
  - Cardiac arrest [Fatal]
  - Drug ineffective [Unknown]
  - Stenotrophomonas bacteraemia [Recovered/Resolved]
  - Acute kidney injury [Unknown]
  - Pseudomonal bacteraemia [Recovered/Resolved]
  - Acinetobacter bacteraemia [Recovered/Resolved]
  - Klebsiella bacteraemia [Recovered/Resolved]
  - Systemic candida [Recovered/Resolved]
  - Off label use [Unknown]
